FAERS Safety Report 16754171 (Version 1)
Quarter: 2019Q3

REPORT INFORMATION
  Report Type: Spontaneous
  Country: FR (occurrence: FR)
  Receive Date: 20190829
  Receipt Date: 20190829
  Transmission Date: 20191005
  Serious: Yes (Other)
  Sender: FDA-Public Use
  Company Number: FR-ACCORD-153186

PATIENT
  Age: 49 Year
  Sex: Female
  Weight: 64 kg

DRUGS (1)
  1. CARBOPLATINE ACCORD [Suspect]
     Active Substance: CARBOPLATIN
     Indication: BREAST CANCER METASTATIC
     Route: 042
     Dates: start: 20190731, end: 20190731

REACTIONS (8)
  - Angioedema [Recovered/Resolved]
  - Erythema [Recovered/Resolved]
  - Oral pruritus [Recovered/Resolved]
  - Cough [Recovered/Resolved]
  - Off label use [Unknown]
  - Hypersensitivity [Recovered/Resolved]
  - Malaise [Recovered/Resolved]
  - Urticaria [Recovered/Resolved]

NARRATIVE: CASE EVENT DATE: 20190731
